FAERS Safety Report 4587058-4 (Version None)
Quarter: 2005Q1

REPORT INFORMATION
  Report Type: 
  Country: None (occurrence: None)
  Receive Date: 20050214
  Receipt Date: 20050119
  Transmission Date: 20050727
  Serious: Yes (Other)
  Sender: FDA-Public Use
  Company Number: AWBNIASPAND2004-13

PATIENT
  Age: 49 Year
  Sex: Male

DRUGS (2)
  1. NIASPAN [Suspect]
     Indication: HIGH DENSITY LIPOPROTEIN DECREASED
     Dosage: 500 MG BID PO
     Route: 048
     Dates: start: 20041004, end: 20041110
  2. NIASPAN [Suspect]
     Indication: LIPID METABOLISM DISORDER
     Dosage: 500 MG BID PO
     Route: 048
     Dates: start: 20041004, end: 20041110

REACTIONS (6)
  - BURNING SENSATION [None]
  - CIRCULATORY COLLAPSE [None]
  - FLUSHING [None]
  - FOOD INTERACTION [None]
  - HYPERHIDROSIS [None]
  - MEDICATION ERROR [None]
